FAERS Safety Report 9424569 (Version 3)
Quarter: 2013Q4

REPORT INFORMATION
  Report Type: Spontaneous
  Country: US (occurrence: US)
  Receive Date: 20130729
  Receipt Date: 20131008
  Transmission Date: 20140711
  Serious: Yes (Other)
  Sender: FDA-Public Use
  Company Number: US-AMGEN-USASP2013045498

PATIENT
  Age: 0 Day
  Sex: Female

DRUGS (10)
  1. ENBREL [Suspect]
     Indication: PRODUCT USED FOR UNKNOWN INDICATION
     Dosage: 25 MG, Q2WK
     Route: 064
     Dates: start: 200107
  2. ENBREL [Suspect]
     Indication: PRODUCT USED FOR UNKNOWN INDICATION
     Dosage: 25 MG, Q2WK
     Route: 064
     Dates: start: 200107
  3. NOVOLOG [Concomitant]
     Indication: TYPE 1 DIABETES MELLITUS
     Dosage: UNK
     Route: 064
     Dates: start: 200306
  4. PNV [Concomitant]
     Indication: PREGNANCY
     Dosage: UNK UNK, QD
     Route: 064
     Dates: start: 201105
  5. VITAMIN D3 [Concomitant]
     Indication: VITAMIN D DECREASED
     Dosage: 2000 UNIT, QD
     Route: 064
     Dates: start: 201301
  6. CALCIUM [Concomitant]
     Indication: PREGNANCY
     Dosage: 600 MG, QD
     Route: 064
     Dates: start: 201208
  7. PULMICORT [Concomitant]
     Indication: ASTHMA
     Dosage: UNK UNK, BID
     Route: 064
     Dates: start: 201205
  8. CALCIUM WITH VITAMIN D             /00944201/ [Concomitant]
     Dosage: UNK
     Route: 064
  9. SYNTHROID [Concomitant]
     Indication: HYPOTHYROIDISM
     Dosage: 25 MG, QD
     Route: 064
  10. HYLAND^S BABY TEETHING [Concomitant]
     Indication: TOOTH DISORDER
     Dosage: 2-3 TABS, PRN
     Route: 048
     Dates: start: 20130508

REACTIONS (2)
  - Premature baby [Unknown]
  - Exposure during breast feeding [Not Recovered/Not Resolved]
